FAERS Safety Report 25627103 (Version 1)
Quarter: 2025Q3

REPORT INFORMATION
  Report Type: Spontaneous
  Country: US (occurrence: None)
  Receive Date: 20250730
  Receipt Date: 20250730
  Transmission Date: 20251021
  Serious: Yes (Hospitalization, Other)
  Sender: FDA-CTU
  Company Number: None

PATIENT
  Age: 60 Year
  Sex: Male
  Weight: 90 kg

DRUGS (1)
  1. CHLORAPREP ONE-STEP [Suspect]
     Active Substance: CHLORHEXIDINE GLUCONATE\ISOPROPYL ALCOHOL
     Indication: Infection prophylaxis
     Route: 061
     Dates: start: 20250617, end: 20250617

REACTIONS (5)
  - Cauda equina syndrome [None]
  - Post procedural complication [None]
  - Iatrogenic injury [None]
  - Osteomyelitis [None]
  - Intervertebral discitis [None]

NARRATIVE: CASE EVENT DATE: 20250617
